FAERS Safety Report 9821449 (Version 3)
Quarter: 2015Q3

REPORT INFORMATION
  Report Type: Spontaneous
  Country: US (occurrence: US)
  Receive Date: 20140116
  Receipt Date: 20150807
  Transmission Date: 20151125
  Serious: No
  Sender: FDA-Public Use
  Company Number: US-GILEAD-2011-0035452

PATIENT
  Age: 41 Year
  Sex: Male

DRUGS (4)
  1. LETAIRIS [Suspect]
     Active Substance: AMBRISENTAN
     Indication: DRUG ABUSE
  2. LETAIRIS [Suspect]
     Active Substance: AMBRISENTAN
     Indication: CHRONIC KIDNEY DISEASE
  3. LETAIRIS [Suspect]
     Active Substance: AMBRISENTAN
     Indication: PULMONARY HYPERTENSION
     Dates: start: 20090204, end: 20110117
  4. LETAIRIS [Suspect]
     Active Substance: AMBRISENTAN
     Indication: DECREASED APPETITE

REACTIONS (2)
  - Drug ineffective [Unknown]
  - Drug dose omission [Unknown]

NARRATIVE: CASE EVENT DATE: 20110117
